FAERS Safety Report 7005924-7 (Version None)
Quarter: 2010Q3

REPORT INFORMATION
  Report Type: 
  Country: None (occurrence: None)
  Receive Date: 20100917
  Receipt Date: 20100903
  Transmission Date: 20110219
  Serious: Yes (Hospitalization, Congenital Anomaly)
  Sender: FDA-Public Use
  Company Number: DSM-2010-01245

PATIENT
  Sex: Female
  Weight: 1.98 kg

DRUGS (1)
  1. OLMESARTAN MEDOXOMIL [Suspect]
     Indication: DRUG EXPOSURE DURING PREGNANCY
     Dosage: (1 IN 1 D), TRANSPLACENTAL
     Route: 064

REACTIONS (14)
  - ANOMALY OF EXTERNAL EAR CONGENITAL [None]
  - ANURIA [None]
  - CAESAREAN SECTION [None]
  - CEREBRAL VENTRICLE DILATATION [None]
  - DYSMORPHISM [None]
  - DYSPLASIA [None]
  - FONTANELLE BULGING [None]
  - INTRAVENTRICULAR HAEMORRHAGE [None]
  - MATERNAL DRUGS AFFECTING FOETUS [None]
  - NEONATAL RESPIRATORY DISTRESS SYNDROME [None]
  - OLIGOHYDRAMNIOS [None]
  - PREMATURE BABY [None]
  - RENAL FAILURE ACUTE [None]
  - SCAPHOCEPHALY [None]
